FAERS Safety Report 9567850 (Version 1)
Quarter: 2013Q3

REPORT INFORMATION
  Report Type: Spontaneous
  Country: US (occurrence: US)
  Receive Date: 20130930
  Receipt Date: 20130930
  Transmission Date: 20140515
  Serious: No
  Sender: FDA-Public Use
  Company Number: US-AMGEN-USASP2013030530

PATIENT
  Age: 61 Year
  Sex: Male
  Weight: 68.03 kg

DRUGS (11)
  1. ENBREL [Suspect]
     Indication: PRODUCT USED FOR UNKNOWN INDICATION
     Dosage: 50 MG, QWK
     Route: 058
  2. PANCREASE                          /00014701/ [Concomitant]
     Dosage: UNK EC
  3. FOLIC ACID [Concomitant]
     Dosage: 1 MG, UNK
  4. B COMPLEX                          /06817001/ [Concomitant]
     Dosage: UNK
  5. OCUVITE                            /01053801/ [Concomitant]
     Dosage: UNK
  6. SYNTHROID [Concomitant]
     Dosage: 50 MUG, UNK
  7. ADDERALL [Concomitant]
     Dosage: 20 MG, UNK
  8. KADIAN [Concomitant]
     Dosage: 20 MG, CR UNK
  9. AMITRIPTYLIN [Concomitant]
     Dosage: 150 MG, UNK
  10. METHOTREXATE [Concomitant]
     Dosage: 2.5 MG, UNK
  11. SUMATRIPTAN [Concomitant]
     Dosage: 25 MG, UNK

REACTIONS (6)
  - Gastrointestinal pain [Unknown]
  - Abdominal distension [Unknown]
  - Diarrhoea [Unknown]
  - Weight decreased [Unknown]
  - Body temperature [Unknown]
  - Influenza [Unknown]
